FAERS Safety Report 16356691 (Version 1)
Quarter: 2019Q2

REPORT INFORMATION
  Report Type: Spontaneous
  Country: JP (occurrence: JP)
  Receive Date: 20190527
  Receipt Date: 20190527
  Transmission Date: 20190711
  Serious: Yes (Death)
  Sender: FDA-Public Use
  Company Number: JP-ASTELLAS-2019JP009701

PATIENT
  Age: 74 Year
  Sex: Female

DRUGS (4)
  1. FUNGUARD [Suspect]
     Active Substance: MICAFUNGIN SODIUM
     Indication: FUNGAEMIA
     Dosage: 150 MG,/DAY UNKNOWN FREQ.
     Route: 041
     Dates: start: 20180807, end: 20180808
  2. FUNGUARD [Suspect]
     Active Substance: MICAFUNGIN SODIUM
  3. PRODIF [Suspect]
     Active Substance: FOSFLUCONAZOLE
     Indication: FUNGAEMIA
     Dosage: 400 MG/DAY, UNKNOWN FREQ.
     Route: 041
     Dates: start: 20180809, end: 20180810
  4. PRODIF [Suspect]
     Active Substance: FOSFLUCONAZOLE
     Dosage: 200 MG/DAY, UNKNOWN FREQ.
     Route: 041
     Dates: end: 20180822

REACTIONS (2)
  - Condition aggravated [Fatal]
  - Subarachnoid haemorrhage [Fatal]

NARRATIVE: CASE EVENT DATE: 20180721
